FAERS Safety Report 7292562-4 (Version None)
Quarter: 2011Q1

REPORT INFORMATION
  Report Type: 
  Country: None (occurrence: None)
  Receive Date: 20110215
  Receipt Date: 20110210
  Transmission Date: 20110831
  Serious: Yes (Death)
  Sender: FDA-Public Use
  Company Number: ES-SANOFI-AVENTIS-2011SA009036

PATIENT
  Sex: Female

DRUGS (2)
  1. OXALIPLATIN [Suspect]
     Indication: COLON CANCER STAGE III
  2. XELODA [Suspect]
     Indication: COLON CANCER STAGE III

REACTIONS (1)
  - TOXICITY TO VARIOUS AGENTS [None]
